FAERS Safety Report 6537455-2 (Version None)
Quarter: 2010Q1

REPORT INFORMATION
  Report Type: 
  Country: None (occurrence: None)
  Receive Date: 20100114
  Receipt Date: 20100101
  Transmission Date: 20100710
  Serious: Yes (Other)
  Sender: FDA-Public Use
  Company Number: PHEH2010US00602

PATIENT

DRUGS (1)
  1. RECLAST [Suspect]
     Indication: BREAST CANCER METASTATIC
     Dosage: UNK, UNK
     Route: 042

REACTIONS (1)
  - GLOMERULOSCLEROSIS [None]
